FAERS Safety Report 9495875 (Version 1)
Quarter: 2013Q3

REPORT INFORMATION
  Report Type: Spontaneous
  Country: US (occurrence: US)
  Receive Date: 20130903
  Receipt Date: 20130903
  Transmission Date: 20140515
  Serious: Yes (Hospitalization, Other)
  Sender: FDA-Public Use
  Company Number: PHHY2013US095420

PATIENT
  Age: 78 Year
  Sex: Male

DRUGS (18)
  1. ZOMETA [Suspect]
     Dosage: 4 MG, ANNUALLY
     Route: 042
  2. HYDROCHLOROTHIAZIDE [Suspect]
     Dosage: 25 MG, DAILY
     Route: 048
  3. POTASSIUM CHLORIDE [Suspect]
     Dosage: 20 MEQ, UNK
  4. HYDROMORPHONE [Suspect]
     Dosage: 2 MG, UNK
  5. ABIRATERONE ACETATE [Suspect]
     Dosage: 1000 MG, QD
     Dates: start: 20120531, end: 20121210
  6. DASATINIB [Suspect]
     Dosage: 100 MG, QD
     Route: 048
     Dates: start: 20120920, end: 20121031
  7. SUNITINIB MALATE [Suspect]
     Dosage: 37.5 MG, QD
     Route: 048
     Dates: start: 20121130, end: 20121210
  8. ADVAIR DISKUS [Suspect]
     Dosage: 1 DF, BID
  9. AUGMENTIN DUO [Suspect]
     Dosage: 875 MG, BID
     Route: 048
  10. ADVIL//IBUPROFEN [Suspect]
  11. ASPIRIN [Suspect]
     Dosage: 325 MG, DAILY
     Route: 048
  12. COMBIVENT [Suspect]
     Dosage: 14.7 G, PRN
  13. COREG [Suspect]
     Dosage: 6.25 MG, UNK
     Route: 048
  14. NORCO [Suspect]
     Dosage: 1 DF, Q6H
  15. LUPRON [Suspect]
     Dosage: 22.5 MG, Q3MO
     Route: 030
  16. CARAFATE [Suspect]
     Dosage: 10 ML, UNK
  17. XOPENEX [Suspect]
     Dosage: 2 DF, DAILY
  18. TAXOTERE [Concomitant]

REACTIONS (8)
  - Bacterial test positive [Unknown]
  - Stomatitis [Recovered/Resolved]
  - Neutropenia [Recovered/Resolved]
  - Pyrexia [Unknown]
  - Fatigue [Recovered/Resolved]
  - Metastases to bone [Unknown]
  - Prostatic specific antigen increased [Unknown]
  - Haemoglobin decreased [Unknown]
